FAERS Safety Report 7356572-0 (Version None)
Quarter: 2011Q1

REPORT INFORMATION
  Report Type: 
  Country: None (occurrence: None)
  Receive Date: 20110316
  Receipt Date: 20110303
  Transmission Date: 20110831
  Serious: Yes (Hospitalization)
  Sender: FDA-Public Use
  Company Number: PHHY2011JP10094

PATIENT
  Sex: Female

DRUGS (6)
  1. AMLODIPINE [Concomitant]
     Dosage: 5 MG, UNK
     Route: 048
  2. BLOPRESS [Concomitant]
     Dosage: 8 MG, UNK
     Route: 048
  3. TAKEPRON [Concomitant]
     Dosage: 15 MG, UNK
     Route: 048
  4. GASMOTIN [Concomitant]
     Dosage: 15 MG, UNK
     Route: 048
  5. SERMION [Concomitant]
     Dosage: 15 MG, UNK
  6. FAMVIR [Suspect]
     Indication: HERPES ZOSTER
     Dosage: 500 MG, TID
     Route: 048
     Dates: start: 20110126, end: 20110201

REACTIONS (4)
  - URINE OUTPUT DECREASED [None]
  - ASTHENIA [None]
  - RENAL FAILURE ACUTE [None]
  - DECREASED APPETITE [None]
